FAERS Safety Report 15917003 (Version 21)
Quarter: 2023Q2

REPORT INFORMATION
  Report Type: Other
  Country: US (occurrence: None)
  Receive Date: 20190205
  Receipt Date: 20230509
  Transmission Date: 20230722
  Serious: Yes (Hospitalization, Other)
  Sender: FDA-Public Use
  Company Number: US-ROCHE-2096482

PATIENT
  Sex: Female

DRUGS (24)
  1. ERIVEDGE [Suspect]
     Active Substance: VISMODEGIB
     Indication: Basal cell carcinoma
     Dosage: TAKE 1 CAPSULE BY MOUTH EVERY OTHER DAY
     Route: 048
     Dates: start: 201703
  2. ERIVEDGE [Suspect]
     Active Substance: VISMODEGIB
     Indication: Metastases to lung
     Dosage: FREQUENCY: EVERY OTHER DAY.
     Route: 048
     Dates: start: 20180313
  3. ERIVEDGE [Suspect]
     Active Substance: VISMODEGIB
     Indication: Metastatic squamous cell carcinoma
     Dosage: TAKE 1 CAPSULE BY MOUTH EVERY MONDAY AND FRIDAY
     Route: 048
     Dates: start: 20180312
  4. ERIVEDGE [Suspect]
     Active Substance: VISMODEGIB
     Dosage: TAKE 1 CAPSULE BY MOUTH EVERY MONDAY, WEDNESDAY, FRIDAY AND SATURDAY
     Route: 048
  5. ERIVEDGE [Suspect]
     Active Substance: VISMODEGIB
     Dosage: TAKE 1 CAPSULE BY MOUTH EVERY MONDAY, WEDNESDAY, FRIDAY AND SATURDAY
     Route: 048
     Dates: start: 20170101
  6. HYDROCHLOROTHIAZIDE [Concomitant]
     Active Substance: HYDROCHLOROTHIAZIDE
     Route: 065
  7. MIRTAZAPINE [Concomitant]
     Active Substance: MIRTAZAPINE
  8. VITAMIN D3 [Concomitant]
     Active Substance: CHOLECALCIFEROL
     Dosage: 50000 UNIT
  9. LOMOTIL [Concomitant]
     Active Substance: ATROPINE SULFATE\DIPHENOXYLATE HYDROCHLORIDE
     Dosage: 2.5 - 0.02 MG
  10. POTASSIUM [Concomitant]
     Active Substance: POTASSIUM
  11. REMERON [Concomitant]
     Active Substance: MIRTAZAPINE
  12. MAGNESIUM [Concomitant]
     Active Substance: MAGNESIUM
  13. MEGESTROL ACETATE [Concomitant]
     Active Substance: MEGESTROL ACETATE
  14. CEPHALEXIN [Concomitant]
     Active Substance: CEPHALEXIN
  15. VERAPAMIL HYDROCHLORIDE [Concomitant]
     Active Substance: VERAPAMIL HYDROCHLORIDE
  16. MEGESTROL [Concomitant]
     Active Substance: MEGESTROL
  17. MAGNESIUM [Concomitant]
     Active Substance: MAGNESIUM
  18. POTASSIUM [Concomitant]
     Active Substance: POTASSIUM
  19. LOMOTIL (UNITED KINGDOM) [Concomitant]
  20. REMERON [Concomitant]
     Active Substance: MIRTAZAPINE
  21. CEFPODOXIME [Concomitant]
     Active Substance: CEFPODOXIME
  22. COLESTIPOL [Concomitant]
     Active Substance: COLESTIPOL
  23. MARINOL [Concomitant]
     Active Substance: DRONABINOL
  24. XARELTO [Concomitant]
     Active Substance: RIVAROXABAN

REACTIONS (26)
  - Thrombosis [Not Recovered/Not Resolved]
  - Nephrolithiasis [Unknown]
  - Muscle spasms [Not Recovered/Not Resolved]
  - Cellulitis [Not Recovered/Not Resolved]
  - Hypokalaemia [Not Recovered/Not Resolved]
  - Diarrhoea [Not Recovered/Not Resolved]
  - Blood magnesium decreased [Not Recovered/Not Resolved]
  - Fatigue [Not Recovered/Not Resolved]
  - Vaginal haemorrhage [Unknown]
  - Weight decreased [Not Recovered/Not Resolved]
  - Decreased appetite [Recovered/Resolved]
  - Gastrooesophageal reflux disease [Unknown]
  - Parosmia [Unknown]
  - Weight increased [Recovering/Resolving]
  - Alopecia [Not Recovered/Not Resolved]
  - Increased appetite [Unknown]
  - Insomnia [Unknown]
  - Gastrointestinal disorder [Not Recovered/Not Resolved]
  - Nausea [Not Recovered/Not Resolved]
  - Abdominal pain upper [Not Recovered/Not Resolved]
  - Muscle twitching [Not Recovered/Not Resolved]
  - Blood potassium decreased [Not Recovered/Not Resolved]
  - Urinary tract infection [Unknown]
  - Colitis [Unknown]
  - Malaise [Unknown]
  - Drug intolerance [Not Recovered/Not Resolved]
